FAERS Safety Report 9228510 (Version 2)
Quarter: 2013Q2

REPORT INFORMATION
  Report Type: Spontaneous
  Country: CO (occurrence: CO)
  Receive Date: 20130412
  Receipt Date: 20130418
  Transmission Date: 20140414
  Serious: Yes (Other)
  Sender: FDA-Public Use
  Company Number: CO-ROCHE-1211481

PATIENT
  Age: 53 Year
  Sex: Male

DRUGS (9)
  1. XOLAIR [Suspect]
     Indication: RESPIRATORY DISORDER
     Route: 042
     Dates: start: 20121112
  2. XOLAIR [Suspect]
     Indication: ASTHMA
     Route: 058
  3. DYPHYLLINE [Concomitant]
  4. MONTELUKAST [Concomitant]
  5. OMEPRAZOLE [Concomitant]
  6. LORATADIN [Concomitant]
  7. SALBUTAMOL [Concomitant]
  8. THEOPHYLLINE [Concomitant]
  9. SERETIDE [Concomitant]

REACTIONS (8)
  - Asthmatic crisis [Recovered/Resolved]
  - Oedema peripheral [Recovered/Resolved]
  - Hypersensitivity [Recovering/Resolving]
  - Incorrect route of drug administration [Unknown]
  - Rash [Recovered/Resolved]
  - Wheezing [Unknown]
  - Cough [Unknown]
  - Sneezing [Unknown]
